FAERS Safety Report 5032636-1 (Version None)
Quarter: 2006Q2

REPORT INFORMATION
  Report Type: 
  Country: None (occurrence: None)
  Receive Date: 20060620
  Receipt Date: 20060607
  Transmission Date: 20061013
  Serious: Yes (Hospitalization, Other)
  Sender: FDA-Public Use
  Company Number: 2006072801

PATIENT
  Age: 68 Year
  Sex: Male
  Weight: 71.2147 kg

DRUGS (2)
  1. SUTENT [Suspect]
     Indication: RENAL CELL CARCINOMA STAGE UNSPECIFIED
     Dosage: (50 MG, CYCLIC), ORAL
     Route: 048
     Dates: start: 20060301, end: 20060601
  2. DRUG IN DIABETES (DRUG USED IN DIABETES) [Concomitant]

REACTIONS (1)
  - HAEMORRHAGIC STROKE [None]
